FAERS Safety Report 15335447 (Version 3)
Quarter: 2018Q4

REPORT INFORMATION
  Report Type: Report from Study
  Country: GB (occurrence: GB)
  Receive Date: 20180830
  Receipt Date: 20181026
  Transmission Date: 20190204
  Serious: Yes (Other)
  Sender: FDA-Public Use
  Company Number: GB-VERTEX PHARMACEUTICALS-2018-006064

PATIENT
  Age: 24 Year
  Sex: Female
  Weight: 42 kg

DRUGS (33)
  1. POSACONAZOLE [Concomitant]
     Active Substance: POSACONAZOLE
     Indication: FUNGAL INFECTION
     Dosage: 300 MG, QD
     Route: 048
     Dates: start: 2017
  2. MIRTAZEPINE TEVA [Concomitant]
     Active Substance: MIRTAZAPINE
     Indication: DEPRESSION
     Dosage: 45 MG, QD
     Route: 048
  3. ADCAL D3 [Concomitant]
     Active Substance: CALCIUM CARBONATE\CHOLECALCIFEROL
     Dosage: 2 TABLETS IN THE MORNING
     Route: 048
     Dates: start: 20180726
  4. CREON [Concomitant]
     Active Substance: PANCRELIPASE AMYLASE\PANCRELIPASE LIPASE\PANCRELIPASE PROTEASE
     Dosage: 1-30 CAPSULES TID
     Route: 048
     Dates: start: 20180725
  5. FLIXONASE NASULE [Concomitant]
     Active Substance: FLUTICASONE PROPIONATE
     Dosage: 400MCG DROPS, 6 DROPS QD
     Route: 045
     Dates: start: 20180727
  6. AZITHROMYCIN ANHYDROUS. [Concomitant]
     Active Substance: AZITHROMYCIN ANHYDROUS
     Dosage: 500 MG QD ON MWF
     Route: 048
     Dates: start: 20180806
  7. CHLORPHENAMINE MALEATE [Concomitant]
     Active Substance: CHLORPHENIRAMINE MALEATE
     Dosage: 4 MG, QID
     Route: 048
     Dates: start: 20180817, end: 20180817
  8. CEFTAZIDIME. [Concomitant]
     Active Substance: CEFTAZIDIME
     Indication: INFECTIVE PULMONARY EXACERBATION OF CYSTIC FIBROSIS
     Dosage: 2 GRAM, TID
     Route: 042
     Dates: start: 20180817
  9. SODIUM CHLORIDE. [Concomitant]
     Active Substance: SODIUM CHLORIDE
     Dosage: 4 MILLILITER, BID
     Route: 055
     Dates: start: 20180725
  10. BUDESONIDE. [Concomitant]
     Active Substance: BUDESONIDE
     Dosage: 200 MICROGRAM, BID
     Route: 055
     Dates: start: 20180725
  11. OMEPRAZOLE. [Concomitant]
     Active Substance: OMEPRAZOLE
     Dosage: 20 MG, QD
     Route: 048
     Dates: start: 20180727
  12. MOVICOL [Concomitant]
     Active Substance: POLYETHYLENE GLYCOL 3350\POTASSIUM CHLORIDE\SODIUM BICARBONATE\SODIUM CHLORIDE
     Dosage: 1 SACHET BID
     Route: 048
     Dates: start: 20180815
  13. POSACONAZOLE [Concomitant]
     Active Substance: POSACONAZOLE
     Dosage: 100 MG, BID
     Route: 048
     Dates: start: 20180725
  14. MENADIOL SODIUM PHOSPHATE [Concomitant]
     Dosage: 10 MG, QD
     Route: 048
     Dates: start: 20180726
  15. PREDNISOLONE. [Concomitant]
     Active Substance: PREDNISOLONE
     Indication: CYSTIC FIBROSIS
     Dosage: 7.5 MG, QD
     Route: 048
  16. VENLAFAXINE [Concomitant]
     Active Substance: VENLAFAXINE HYDROCHLORIDE
     Indication: DEPRESSION
     Dosage: 75 MG, QD
     Route: 048
     Dates: start: 20180809
  17. TEZACAFTOR/IVACAFTOR COMBINATION [Suspect]
     Active Substance: IVACAFTOR\TEZACAFTOR
     Indication: CYSTIC FIBROSIS
     Dosage: MODIFIED DOSE: 150MG / 100MG TWICE WEEKLY
     Route: 048
     Dates: start: 20180816, end: 20180820
  18. VENLAFAXINE [Concomitant]
     Active Substance: VENLAFAXINE HYDROCHLORIDE
     Indication: ANXIETY
     Dosage: 37.5 MG, QD
     Route: 048
     Dates: start: 20180803, end: 20180809
  19. VITA-E [Concomitant]
     Dosage: 400 ARBITRARY UNITS, QD
     Route: 048
     Dates: start: 20180726
  20. SINUS RINSE [Concomitant]
     Active Substance: SODIUM BICARBONATE\SODIUM CHLORIDE
     Dosage: 1 NASAL LIQUID BOTH NOSTRILS BID
     Route: 045
     Dates: start: 20180725
  21. LIDOCAINE. [Concomitant]
     Active Substance: LIDOCAINE
     Dosage: 1 PATCH QD
     Route: 062
     Dates: start: 20180727
  22. CEFTOLOZANE;TAZOBACTAM [Concomitant]
     Active Substance: CEFTOLOZANE SULFATE\TAZOBACTAM SODIUM
     Dosage: 1.5 GRAMS Q8HRS
     Route: 042
     Dates: start: 20180731, end: 20180817
  23. TOBRAMYCIN. [Concomitant]
     Active Substance: TOBRAMYCIN
     Dosage: 250 MG, QD
     Route: 042
     Dates: start: 20180818
  24. PREDNISOLONE. [Concomitant]
     Active Substance: PREDNISOLONE
     Indication: RASH
     Dosage: 30 MG, QD
     Route: 048
     Dates: start: 20180817, end: 20180820
  25. PREDNISOLONE. [Concomitant]
     Active Substance: PREDNISOLONE
     Indication: EOSINOPHILIA
     Dosage: 50 MG, QD
     Route: 048
     Dates: start: 20180820
  26. DORNASE ALFA. [Concomitant]
     Active Substance: DORNASE ALFA
     Dosage: 2.5 MG QAM ON ALTERNATE DAYS
     Route: 055
     Dates: start: 20180826
  27. PARACETAMOL [Concomitant]
     Active Substance: ACETAMINOPHEN
     Dosage: 650 MG Q6HRS
     Route: 042
     Dates: start: 20180818, end: 20180820
  28. MIRTAZEPINE TEVA [Concomitant]
     Active Substance: MIRTAZAPINE
     Indication: ANXIETY
  29. URSODEOXYCHOLIC ACID [Concomitant]
     Active Substance: URSODIOL
     Dosage: 250 MG, BID
     Route: 048
     Dates: start: 20180725
  30. VITAMIN A + D                      /00343801/ [Concomitant]
     Dosage: 3 CAPSULES QD
     Route: 048
     Dates: start: 20180726
  31. SODIUM CHLORIDE. [Concomitant]
     Active Substance: SODIUM CHLORIDE
     Dosage: 1200 MG, TID
     Route: 048
     Dates: start: 20180725
  32. AZTREONAM. [Concomitant]
     Active Substance: AZTREONAM
     Dosage: 75 MG, TID
     Route: 055
     Dates: start: 20180814
  33. PARACETAMOL [Concomitant]
     Active Substance: ACETAMINOPHEN
     Dosage: 500 MG Q6HRS
     Route: 042
     Dates: start: 20180820

REACTIONS (3)
  - Rash [Recovered/Resolved]
  - Off label use [Unknown]
  - Eosinophilia [Recovered/Resolved]

NARRATIVE: CASE EVENT DATE: 2018
